FAERS Safety Report 5606189-0 (Version None)
Quarter: 2008Q1

REPORT INFORMATION
  Report Type: 
  Country: None (occurrence: None)
  Receive Date: 20080129
  Receipt Date: 20070119
  Transmission Date: 20080703
  Serious: No
  Sender: FDA-Public Use
  Company Number: A0636215A

PATIENT
  Sex: Female

DRUGS (1)
  1. BUPROPION HCL [Suspect]
     Dates: start: 20070101

REACTIONS (3)
  - ADVERSE EVENT [None]
  - DISCOMFORT [None]
  - DRUG INEFFECTIVE [None]
